FAERS Safety Report 21838731 (Version 1)
Quarter: 2023Q1

REPORT INFORMATION
  Report Type: Spontaneous
  Country: FR (occurrence: FR)
  Receive Date: 20230109
  Receipt Date: 20230109
  Transmission Date: 20230417
  Serious: Yes (Other)
  Sender: FDA-Public Use
  Company Number: None

PATIENT
  Age: 35 Year
  Sex: Male
  Weight: 79 kg

DRUGS (2)
  1. BUPRENORPHINE [Interacting]
     Active Substance: BUPRENORPHINE
     Indication: Drug dependence
     Dosage: LONG TERM
     Route: 048
  2. NALMEFENE HYDROCHLORIDE DIHYDRATE [Interacting]
     Active Substance: NALMEFENE HYDROCHLORIDE DIHYDRATE
     Indication: Alcoholism
     Dosage: 18 MILLIGRAM (1 TOTAL)
     Route: 048
     Dates: start: 20221109, end: 20221109

REACTIONS (4)
  - Drug withdrawal syndrome [Recovered/Resolved]
  - Contraindicated product prescribed [Recovered/Resolved]
  - Product prescribing error [Recovered/Resolved]
  - Drug interaction [Unknown]

NARRATIVE: CASE EVENT DATE: 20221109
